FAERS Safety Report 7917758-7 (Version None)
Quarter: 2011Q4

REPORT INFORMATION
  Report Type: 
  Country: None (occurrence: None)
  Receive Date: 20111116
  Receipt Date: 20111116
  Transmission Date: 20120403
  Serious: Yes (Other)
  Sender: FDA-Public Use
  Company Number: JP-JNJFOC-20111102960

PATIENT
  Age: 19 Year
  Sex: Female

DRUGS (3)
  1. TRAMADOL HYDROCHLORIDE/ACETAMINOPHEN [Suspect]
     Indication: PAIN
     Route: 048
     Dates: start: 20111027, end: 20111027
  2. TRAMADOL HYDROCHLORIDE/ACETAMINOPHEN [Suspect]
     Route: 048
     Dates: start: 20111024, end: 20111026
  3. TRAMADOL HYDROCHLORIDE/ACETAMINOPHEN [Suspect]
     Route: 048
     Dates: start: 20111028, end: 20111101

REACTIONS (2)
  - URINARY RETENTION [None]
  - DYSURIA [None]
